FAERS Safety Report 14858058 (Version 3)
Quarter: 2018Q2

REPORT INFORMATION
  Report Type: Report from Study
  Country: US (occurrence: US)
  Receive Date: 20180508
  Receipt Date: 20180517
  Transmission Date: 20180711
  Serious: Yes (Hospitalization, Other)
  Sender: FDA-Public Use
  Company Number: US-AMGEN-USACT2018058948

PATIENT
  Age: 49 Year
  Sex: Female

DRUGS (12)
  1. INOTUZUMAB OZOGAMICIN [Suspect]
     Active Substance: INOTUZUMAB OZOGAMICIN
     Indication: ACUTE LYMPHOCYTIC LEUKAEMIA
     Dosage: 0.4 MG, REGIMEN A: OVER 1 HOUR ON DAY 3 (C2D17); REGIMEN B: ON DAY 2 OR 3 (CYCLES 2 AND 4 ONLY)
     Route: 042
     Dates: start: 20180125
  2. MESNA. [Suspect]
     Active Substance: MESNA
     Indication: ACUTE LYMPHOCYTIC LEUKAEMIA
     Dosage: 300 MG/M2, (REGIMEN A:DAILY OVER 24 HOURS FOR 3 DAYS ON DAYS 1-3)
     Route: 042
  3. METHOTREXATE SODIUM. [Suspect]
     Active Substance: METHOTREXATE SODIUM
     Indication: ACUTE LYMPHOCYTIC LEUKAEMIA
     Dosage: 50 MG/M2, UNK (OVER 2HRS ON DAY 1)
     Route: 042
  4. VINCRISTINE SULFATE. [Suspect]
     Active Substance: VINCRISTINE SULFATE
     Indication: ACUTE LYMPHOCYTIC LEUKAEMIA
     Dosage: 2 MG, UNK (REGIMEN A: IV DAY 1 AND DAY 8)
     Route: 042
  5. METHOTREXATE SODIUM. [Suspect]
     Active Substance: METHOTREXATE SODIUM
     Dosage: 200 MG/M2, (REGIMEN B: CONTINUOUS INFUSION OVER 22 HOURS ON DAY 1)
     Route: 042
  6. DEXAMETHASONE PHOSPHATE [Suspect]
     Active Substance: DEXAMETHASONE PHOSPHATE
     Indication: ACUTE LYMPHOCYTIC LEUKAEMIA
     Dosage: 20 MG, (REGIMEN A: DAILY FOR 4 DAYS ON DAYS 1-4 AND DAYS 11-14)
     Route: 042
  7. CYCLOPHOSPHAMIDE. [Suspect]
     Active Substance: CYCLOPHOSPHAMIDE
     Indication: ACUTE LYMPHOCYTIC LEUKAEMIA
     Dosage: 150 MG/M2, BID (REGIMEN A: OVER 3 HOURS TWICE A DAY ON DAYS 1-3)
     Route: 042
  8. PEGFILGRASTIM [Suspect]
     Active Substance: PEGFILGRASTIM
     Dosage: 6 MG, REGIMEN B: 6 MG (OR FILGRASTIM 5-10 MCG/KG DAILY), ON DAY 4
     Route: 058
  9. CYTARABINE. [Suspect]
     Active Substance: CYTARABINE
     Indication: ACUTE LYMPHOCYTIC LEUKAEMIA
     Dosage: 0.5 MG/M2, BID (REGIMEN B: OVER 3 HOURS TWICE A DAY X 4 DOSES ON DAYS 2 AND 3)
     Route: 042
  10. PEGFILGRASTIM [Suspect]
     Active Substance: PEGFILGRASTIM
     Indication: PRODUCT USED FOR UNKNOWN INDICATION
     Dosage: 6 MG, REGIMEN A: 6 MG (OR FILGRASTIM 5-10 MCG/KG DAILY), ON DAY 4
     Route: 058
  11. RITUXIMAB. [Suspect]
     Active Substance: RITUXIMAB
     Indication: ACUTE LYMPHOCYTIC LEUKAEMIA
     Dosage: 375 MG/M2, CYCLICAL (REGIMENA: DAY2 AND DAY8(CYCLES1 AND 3 ONLY)REGIMENB:DAY2 AND 8 OF CYCLE2 AND 4
     Route: 042
  12. RITUXIMAB. [Suspect]
     Active Substance: RITUXIMAB
     Dosage: 375 MG/M2, CYCLICAL (REGIMEN B: DAY2 AND DAY8(CYCLES1 AND 3 ONLY)REGIMENB:DAY2 AND 8 OF CYCLE2 AND 4
     Route: 042

REACTIONS (1)
  - Gastrointestinal haemorrhage [Recovered/Resolved]

NARRATIVE: CASE EVENT DATE: 20180331
